FAERS Safety Report 9299240 (Version 1)
Quarter: 2013Q2

REPORT INFORMATION
  Report Type: Spontaneous
  Country: CH (occurrence: CH)
  Receive Date: 20130520
  Receipt Date: 20130520
  Transmission Date: 20140414
  Serious: Yes (Hospitalization)
  Sender: FDA-Public Use
  Company Number: CH-TEVA-404573ISR

PATIENT
  Age: 80 Year
  Sex: Female

DRUGS (7)
  1. CAPTOPRIL [Suspect]
     Route: 048
     Dates: start: 201210
  2. AMLODIPINE [Suspect]
     Dosage: 1.25 MILLIGRAM DAILY; INTAKE SINCE ABOUT 2 MONTHS
     Route: 048
     Dates: start: 201301, end: 20130308
  3. FLORINEF TABLETS [Suspect]
     Dosage: .2 MILLIGRAM DAILY;
     Route: 048
     Dates: start: 201211
  4. FLORINEF TABLETS [Suspect]
     Dosage: .1 MILLIGRAM DAILY; THE DRUG WAS CONTINUED AT A REDUCED DOSE OF 0.1 MG PER DAY
     Route: 048
  5. SINTROM [Concomitant]
     Dosage: ACCORDING TO SCHEME; CONTINUING
     Route: 048
  6. CORDARONE [Concomitant]
     Dosage: 100 MILLIGRAM DAILY; CONTINUING
     Route: 048
  7. PANTOZOL [Concomitant]
     Dosage: 40 MILLIGRAM DAILY; CONTINUING
     Route: 048

REACTIONS (4)
  - Orthostatic hypotension [Recovered/Resolved]
  - Presyncope [Recovered/Resolved]
  - Therapeutic response increased [Recovered/Resolved]
  - Hypokalaemia [Recovered/Resolved]
